FAERS Safety Report 5155074-X (Version None)
Quarter: 2006Q4

REPORT INFORMATION
  Report Type: 
  Country: None (occurrence: None)
  Receive Date: 20061121
  Receipt Date: 20061116
  Transmission Date: 20070319
  Serious: Yes (Hospitalization)
  Sender: FDA-Public Use
  Company Number: US-GLAXOSMITHKLINE-A0627821A

PATIENT
  Age: 72 Year
  Sex: Male

DRUGS (12)
  1. IMITREX [Suspect]
     Indication: MIGRAINE
     Dosage: 50MG AS REQUIRED
     Route: 048
     Dates: end: 20061111
  2. METOPROLOL [Concomitant]
  3. INDERAL [Concomitant]
  4. VYTORIN [Concomitant]
  5. LYRICA [Concomitant]
  6. AVANDIA [Concomitant]
  7. METFORMIN [Concomitant]
  8. GLIMEPIRIDE [Concomitant]
  9. ASPIRIN [Concomitant]
  10. CENTRUM A-Z [Concomitant]
  11. PREVACID [Concomitant]
  12. VALIUM [Concomitant]

REACTIONS (2)
  - ARTERIAL OCCLUSIVE DISEASE [None]
  - OVERDOSE [None]
